FAERS Safety Report 20511773 (Version 1)
Quarter: 2022Q1

REPORT INFORMATION
  Report Type: Spontaneous
  Country: US (occurrence: US)
  Receive Date: 20220224
  Receipt Date: 20220224
  Transmission Date: 20220424
  Serious: No
  Sender: FDA-Public Use
  Company Number: US-BAUSCH-BL-2022-004770

PATIENT
  Sex: Female

DRUGS (1)
  1. METYROSINE [Suspect]
     Active Substance: METYROSINE
     Indication: Velo-cardio-facial syndrome
     Route: 065

REACTIONS (4)
  - Adverse event [Not Recovered/Not Resolved]
  - Therapy interrupted [Unknown]
  - Insurance issue [Unknown]
  - Inability to afford medication [Unknown]
